FAERS Safety Report 6063222-2 (Version None)
Quarter: 2009Q1

REPORT INFORMATION
  Report Type: 
  Country: None (occurrence: None)
  Receive Date: 20090203
  Receipt Date: 20090121
  Transmission Date: 20090719
  Serious: Yes (Death)
  Sender: FDA-Public Use
  Company Number: US-PFIZER INC-2008085249

PATIENT
  Age: 25 Year
  Sex: Female
  Weight: 74.376 kg

DRUGS (4)
  1. GEODON [Suspect]
     Route: 048
     Dates: start: 20080516, end: 20080821
  2. ABILIFY [Concomitant]
  3. LAMICTAL [Concomitant]
  4. ATIVAN [Concomitant]

REACTIONS (3)
  - COMPLETED SUICIDE [None]
  - GUN SHOT WOUND [None]
  - OVERDOSE [None]
